FAERS Safety Report 18625997 (Version 2)
Quarter: 2020Q4

REPORT INFORMATION
  Report Type: Spontaneous
  Country: DE (occurrence: DE)
  Receive Date: 20201217
  Receipt Date: 20201225
  Transmission Date: 20210114
  Serious: Yes (Hospitalization, Other)
  Sender: FDA-Public Use
  Company Number: DE-ROCHE-2726885

PATIENT
  Age: 63 Year
  Sex: Female

DRUGS (5)
  1. PERTUZUMAB. [Suspect]
     Active Substance: PERTUZUMAB
     Indication: BREAST CANCER
     Dosage: UNK
     Route: 065
  2. TRASTUZUMAB. [Suspect]
     Active Substance: TRASTUZUMAB
     Indication: BREAST CANCER
     Dosage: 12X Q1W
     Route: 065
  3. CYCLOPHOSPHAMID [Suspect]
     Active Substance: CYCLOPHOSPHAMIDE
     Indication: BREAST CANCER
     Dosage: 4X EC DD Q2W
     Route: 065
     Dates: start: 20200610
  4. PACLITAXEL. [Suspect]
     Active Substance: PACLITAXEL
     Indication: BREAST CANCER
     Dosage: 12X Q1W
     Route: 065
  5. EPIRUBICIN HCL [Suspect]
     Active Substance: EPIRUBICIN HYDROCHLORIDE
     Indication: BREAST CANCER
     Dosage: 4X EC DD Q2W
     Route: 065
     Dates: start: 20200610

REACTIONS (11)
  - Neutropenia [Unknown]
  - Bronchiectasis [Unknown]
  - Pneumonitis chemical [Recovered/Resolved]
  - Tachycardia [Unknown]
  - Pulmonary embolism [Recovered/Resolved]
  - Emphysema [Unknown]
  - Pneumonia [Recovered/Resolved]
  - Osteopenia [Unknown]
  - Respiratory failure [Unknown]
  - Leukopenia [Unknown]
  - Spinal osteoarthritis [Unknown]

NARRATIVE: CASE EVENT DATE: 202008
